FAERS Safety Report 6082335-2 (Version None)
Quarter: 2009Q1

REPORT INFORMATION
  Report Type: 
  Country: None (occurrence: None)
  Receive Date: 20090218
  Receipt Date: 20090209
  Transmission Date: 20090719
  Serious: Yes (Death)
  Sender: FDA-Public Use
  Company Number: GB-ROCHE-613200

PATIENT
  Age: 60 Year
  Sex: Male
  Weight: 81 kg

DRUGS (2)
  1. CLONAZEPAM [Suspect]
     Indication: TORTICOLLIS
     Route: 048
  2. CLOZAPINE [Suspect]
     Indication: SCHIZOPHRENIA
     Dosage: ACTION TAKEN WITH THE DRUG: NOT APPLICABLE. DRUG NAME WAS REPORTED AS DENZAPINE
     Route: 048
     Dates: start: 20040106

REACTIONS (1)
  - DEATH [None]
